FAERS Safety Report 7730171-0 (Version None)
Quarter: 2011Q3

REPORT INFORMATION
  Report Type: 
  Country: None (occurrence: None)
  Receive Date: 20110906
  Receipt Date: 20110830
  Transmission Date: 20111222
  Serious: Yes (Other)
  Sender: FDA-Public Use
  Company Number: PHHY2011DE78289

PATIENT
  Sex: Male

DRUGS (2)
  1. BUDESONIDE [Suspect]
     Dosage: UNK UKN, UNK
  2. FORADIL [Suspect]
     Indication: ASTHMA
     Dosage: UNK UKN, UNK

REACTIONS (3)
  - HYPOTHYROIDISM [None]
  - PALPITATIONS [None]
  - ATRIAL FIBRILLATION [None]
